FAERS Safety Report 15668946 (Version 1)
Quarter: 2018Q4

REPORT INFORMATION
  Report Type: Report from Study
  Country: AU (occurrence: AU)
  Receive Date: 20181129
  Receipt Date: 20181129
  Transmission Date: 20190205
  Serious: No
  Sender: FDA-Public Use
  Company Number: AU-ROCHE-2218539

PATIENT
  Sex: Female

DRUGS (1)
  1. OCREVUS [Suspect]
     Active Substance: OCRELIZUMAB
     Indication: RELAPSING-REMITTING MULTIPLE SCLEROSIS
     Route: 041
     Dates: start: 20171120

REACTIONS (4)
  - Bacterial vulvovaginitis [Recovered/Resolved]
  - Vulvovaginal candidiasis [Recovered/Resolved]
  - Eczema [Recovered/Resolved]
  - Skin ulcer [Recovered/Resolved]
